FAERS Safety Report 4983966-0 (Version None)
Quarter: 2006Q1

REPORT INFORMATION
  Report Type: 
  Country: None (occurrence: None)
  Receive Date: 20060301
  Receipt Date: 20051201
  Transmission Date: 20060701
  Serious: No
  Sender: FDA-Public Use
  Company Number: S05-USA-05090-01

PATIENT
  Age: 77 Year
  Sex: Female

DRUGS (7)
  1. NAMENDA [Suspect]
     Indication: AMNESIA
     Dosage: 5 MG QD PO
     Route: 048
     Dates: start: 20051121, end: 20051127
  2. NAMENDA [Suspect]
     Indication: AMNESIA
     Dosage: 5 MG BID PO
     Route: 048
     Dates: start: 20051128
  3. ARICEPT (DONEPEZIL HYDOCHLORIDE) [Concomitant]
  4. LIPITOR [Concomitant]
  5. GLUCOPHAGE [Concomitant]
  6. NORVASC [Concomitant]
  7. XANAX [Concomitant]

REACTIONS (1)
  - DIARRHOEA [None]
